FAERS Safety Report 5015794-4 (Version None)
Quarter: 2006Q2

REPORT INFORMATION
  Report Type: 
  Country: None (occurrence: None)
  Receive Date: 20060525
  Receipt Date: 20060504
  Transmission Date: 20061013
  Serious: No
  Sender: FDA-Public Use
  Company Number: 225023

PATIENT
  Sex: Female

DRUGS (1)
  1. HERCEPTIN [Suspect]
     Indication: BREAST CANCER
     Dosage: 6 MG/KG, UNK, INTRAVENOUS
     Route: 042
     Dates: start: 20051012

REACTIONS (3)
  - NAIL DISORDER [None]
  - NAIL INFECTION [None]
  - PARONYCHIA [None]
